FAERS Safety Report 13940945 (Version 1)
Quarter: 2017Q3

REPORT INFORMATION
  Report Type: Spontaneous
  Country: US (occurrence: US)
  Receive Date: 20170906
  Receipt Date: 20170906
  Transmission Date: 20171127
  Serious: Yes (Other)
  Sender: FDA-Public Use
  Company Number: US-BIOGEN-2017BI00452204

PATIENT
  Sex: Female
  Weight: 82.99 kg

DRUGS (5)
  1. KEPPRA [Concomitant]
     Active Substance: LEVETIRACETAM
     Indication: PRODUCT USED FOR UNKNOWN INDICATION
     Route: 065
  2. TIZANIDINE. [Concomitant]
     Active Substance: TIZANIDINE
     Indication: PRODUCT USED FOR UNKNOWN INDICATION
     Route: 065
     Dates: start: 20170130, end: 20170530
  3. TYSABRI [Suspect]
     Active Substance: NATALIZUMAB
     Indication: RELAPSING-REMITTING MULTIPLE SCLEROSIS
     Route: 042
     Dates: start: 20080429
  4. AMPYRA [Concomitant]
     Active Substance: DALFAMPRIDINE
     Indication: MULTIPLE SCLEROSIS
     Route: 048
  5. AMPYRA [Concomitant]
     Active Substance: DALFAMPRIDINE
     Indication: GAIT DISTURBANCE

REACTIONS (19)
  - Decreased vibratory sense [Unknown]
  - Muscular weakness [Unknown]
  - Hypoaesthesia [Unknown]
  - Contusion [Unknown]
  - Vitamin D deficiency [Unknown]
  - Pain [Unknown]
  - Memory impairment [Unknown]
  - Hyperreflexia [Unknown]
  - Hypertonia [Unknown]
  - Interstitial lung disease [Unknown]
  - Neuropathy peripheral [Unknown]
  - Blood glucose fluctuation [Unknown]
  - Cholelithiasis [Unknown]
  - Cognitive disorder [Unknown]
  - Thermohypoaesthesia [Unknown]
  - Fatigue [Unknown]
  - Glycosylated haemoglobin increased [Unknown]
  - Wound infection [Unknown]
  - Balance disorder [Unknown]
